FAERS Safety Report 7188020-8 (Version None)
Quarter: 2010Q4

REPORT INFORMATION
  Report Type: 
  Country: None (occurrence: None)
  Receive Date: 20101222
  Receipt Date: 20100712
  Transmission Date: 20110411
  Serious: No
  Sender: FDA-Public Use
  Company Number: US-AMGEN-TCS423993

PATIENT

DRUGS (1)
  1. ENBREL [Suspect]
     Indication: RHEUMATOID ARTHRITIS
     Dosage: 50 MG, Q2WK
     Route: 058

REACTIONS (5)
  - FALL [None]
  - LOWER LIMB FRACTURE [None]
  - PAIN IN EXTREMITY [None]
  - RASH [None]
  - SKIN LACERATION [None]
